FAERS Safety Report 20976009 (Version 12)
Quarter: 2023Q2

REPORT INFORMATION
  Report Type: Report from Study
  Country: US (occurrence: US)
  Receive Date: 20220617
  Receipt Date: 20230519
  Transmission Date: 20230722
  Serious: No
  Sender: FDA-Public Use
  Company Number: US-NOVARTISTESTPH-NVSC2022US140151

PATIENT
  Sex: Female

DRUGS (1)
  1. KESIMPTA [Suspect]
     Active Substance: OFATUMUMAB
     Indication: Multiple sclerosis
     Dosage: UNK
     Route: 058
     Dates: start: 20220609

REACTIONS (18)
  - Vomiting [Unknown]
  - Fatigue [Unknown]
  - COVID-19 [Unknown]
  - Migraine [Unknown]
  - Panic attack [Unknown]
  - Illness [Unknown]
  - Cough [Unknown]
  - Headache [Unknown]
  - Arthropod bite [Unknown]
  - Pain [Unknown]
  - Pruritus [Unknown]
  - Urticaria [Unknown]
  - Polymenorrhoea [Unknown]
  - Anxiety [Unknown]
  - Stress [Unknown]
  - Injection site discomfort [Unknown]
  - Memory impairment [Unknown]
  - Injection site pain [Unknown]
